FAERS Safety Report 10822159 (Version 1)
Quarter: 2015Q1

REPORT INFORMATION
  Report Type: Report from Study
  Country: US (occurrence: US)
  Receive Date: 20150218
  Receipt Date: 20150218
  Transmission Date: 20150721
  Serious: No
  Sender: FDA-Public Use
  Company Number: US-ABBVIE-14K-163-1303738-00

PATIENT
  Age: 63 Year
  Sex: Female

DRUGS (2)
  1. HUMIRA [Suspect]
     Active Substance: ADALIMUMAB
     Route: 065
     Dates: start: 20141030
  2. HUMIRA [Suspect]
     Active Substance: ADALIMUMAB
     Indication: RHEUMATOID ARTHRITIS
     Route: 065
     Dates: start: 20141016

REACTIONS (6)
  - Contusion [Unknown]
  - Injection site bruising [Recovering/Resolving]
  - Increased tendency to bruise [Unknown]
  - Drug effect incomplete [Not Recovered/Not Resolved]
  - Back pain [Unknown]
  - Breast mass [Unknown]

NARRATIVE: CASE EVENT DATE: 201410
